FAERS Safety Report 5764196-1 (Version None)
Quarter: 2008Q2

REPORT INFORMATION
  Report Type: 
  Country: None (occurrence: None)
  Receive Date: 20080610
  Receipt Date: 20080602
  Transmission Date: 20081010
  Serious: Yes (Hospitalization)
  Sender: FDA-Public Use
  Company Number: US-AMGEN-QUU276777

PATIENT
  Sex: Female
  Weight: 90.3 kg

DRUGS (5)
  1. ENBREL [Suspect]
     Indication: RHEUMATOID ARTHRITIS
     Route: 058
     Dates: start: 20070604, end: 20080415
  2. METHOTREXATE [Concomitant]
     Dates: start: 20020304
  3. VITAMIN D [Concomitant]
     Dates: start: 20020304
  4. CALCIUM [Concomitant]
     Dates: start: 20020304
  5. FOSAMAX [Concomitant]
     Dates: start: 20080214

REACTIONS (2)
  - ARTERIOSPASM CORONARY [None]
  - MYOCARDIAL INFARCTION [None]
